FAERS Safety Report 19045579 (Version 4)
Quarter: 2021Q2

REPORT INFORMATION
  Report Type: Report from Study
  Country: CO (occurrence: CO)
  Receive Date: 20210322
  Receipt Date: 20210625
  Transmission Date: 20210717
  Serious: Yes (Hospitalization, Other)
  Sender: FDA-Public Use
  Company Number: CO-SEATTLE GENETICS-2021SGN01649

PATIENT
  Age: 24 Year
  Sex: Female
  Weight: 60 kg

DRUGS (1)
  1. BRENTUXIMAB VEDOTIN [Suspect]
     Active Substance: BRENTUXIMAB VEDOTIN
     Indication: HODGKIN^S DISEASE
     Dosage: 129 MILLIGRAM, Q3WEEKS
     Route: 042
     Dates: start: 20180615

REACTIONS (6)
  - Mobility decreased [Recovering/Resolving]
  - Back pain [Recovering/Resolving]
  - Malaise [Unknown]
  - Thoracic vertebral fracture [Recovering/Resolving]
  - Incorrect product administration duration [Unknown]
  - Spinal pain [Recovering/Resolving]

NARRATIVE: CASE EVENT DATE: 20210222
